FAERS Safety Report 7346286-5 (Version None)
Quarter: 2011Q1

REPORT INFORMATION
  Report Type: 
  Country: None (occurrence: None)
  Receive Date: 20110311
  Receipt Date: 20110308
  Transmission Date: 20110831
  Serious: Yes (Other)
  Sender: FDA-Public Use
  Company Number: US-PFIZER INC-2009189659

PATIENT
  Sex: Female
  Weight: 52.608 kg

DRUGS (1)
  1. CELEBREX [Suspect]
     Indication: HIP ARTHROPLASTY
     Dates: start: 20081120, end: 20081217

REACTIONS (2)
  - GASTROOESOPHAGEAL REFLUX DISEASE [None]
  - MEMORY IMPAIRMENT [None]
